FAERS Safety Report 15744547 (Version 1)
Quarter: 2018Q4

REPORT INFORMATION
  Report Type: Spontaneous
  Country: None (occurrence: US)
  Receive Date: 20181220
  Receipt Date: 20181220
  Transmission Date: 20190205
  Serious: Yes (Other)
  Sender: FDA-Public Use
  Company Number: US-MALLINCKRODT-T201804698

PATIENT
  Age: 72 Year
  Sex: Female

DRUGS (2)
  1. FENTANYL TRANSDERMAL SYSTEM [Suspect]
     Active Substance: FENTANYL
     Dosage: 12 MCG/H EVERY 72 HOURS
     Route: 062
     Dates: start: 201810, end: 201810
  2. FENTANYL TRANSDERMAL SYSTEM [Suspect]
     Active Substance: FENTANYL
     Indication: PAIN
     Dosage: 12 MCG/H EVERY 72 HOURS
     Route: 062
     Dates: start: 201810, end: 201810

REACTIONS (5)
  - Drug withdrawal syndrome [Unknown]
  - Feeling abnormal [Unknown]
  - Product substitution issue [Unknown]
  - Drug ineffective [Unknown]
  - Immobile [None]

NARRATIVE: CASE EVENT DATE: 2018
